FAERS Safety Report 8565353-1 (Version None)
Quarter: 2012Q3

REPORT INFORMATION
  Report Type: 
  Country: None (occurrence: None)
  Receive Date: 20120723
  Receipt Date: 20120705
  Transmission Date: 20120928
  Serious: Yes (Hospitalization)
  Sender: FDA-Public Use
  Company Number: DSA_58558_2012

PATIENT
  Sex: Female

DRUGS (11)
  1. DEXAMETHASONE [Concomitant]
  2. ONDANSETRON [Concomitant]
  3. CYCLOPHOSPHAMIDE [Suspect]
     Indication: BREAST CANCER
     Dosage: EVERY CYCLE INTRAVENOUS, EVERY CYCLE INTRAVENOUS, EVERY CYCLE INTRAVENOUS
     Route: 042
     Dates: start: 20110105, end: 20110105
  4. CYCLOPHOSPHAMIDE [Suspect]
     Indication: BREAST CANCER
     Dosage: EVERY CYCLE INTRAVENOUS, EVERY CYCLE INTRAVENOUS, EVERY CYCLE INTRAVENOUS
     Route: 042
     Dates: start: 20110216, end: 20110216
  5. CYCLOPHOSPHAMIDE [Suspect]
     Indication: BREAST CANCER
     Dosage: EVERY CYCLE INTRAVENOUS, EVERY CYCLE INTRAVENOUS, EVERY CYCLE INTRAVENOUS
     Route: 042
     Dates: start: 20101208, end: 20101208
  6. FLUOROURACIL [Suspect]
     Indication: BREAST CANCER
     Dosage: EVERY CYCLE INTRAVENOUS, EVERY CYCLE INTRAVENOUS, EVERY CYCLE INTRAVENOUS
     Route: 042
     Dates: start: 20110105, end: 20110105
  7. FLUOROURACIL [Suspect]
     Indication: BREAST CANCER
     Dosage: EVERY CYCLE INTRAVENOUS, EVERY CYCLE INTRAVENOUS, EVERY CYCLE INTRAVENOUS
     Route: 042
     Dates: start: 20110216, end: 20110216
  8. FLUOROURACIL [Suspect]
     Indication: BREAST CANCER
     Dosage: EVERY CYCLE INTRAVENOUS, EVERY CYCLE INTRAVENOUS, EVERY CYCLE INTRAVENOUS
     Route: 042
     Dates: start: 20101208, end: 20101208
  9. EPIRUBICIN [Suspect]
     Indication: BREAST CANCER
     Dosage: EVERY CYCLE INTRAVENOUS, EVERY CYCLE INTRAVENOUS, EVERY CYCLE INTRAVENOUS
     Route: 042
     Dates: start: 20110216, end: 20110216
  10. EPIRUBICIN [Suspect]
     Indication: BREAST CANCER
     Dosage: EVERY CYCLE INTRAVENOUS, EVERY CYCLE INTRAVENOUS, EVERY CYCLE INTRAVENOUS
     Route: 042
     Dates: start: 20101208, end: 20101208
  11. EPIRUBICIN [Suspect]
     Indication: BREAST CANCER
     Dosage: EVERY CYCLE INTRAVENOUS, EVERY CYCLE INTRAVENOUS, EVERY CYCLE INTRAVENOUS
     Route: 042
     Dates: start: 20110105, end: 20110105

REACTIONS (1)
  - FEBRILE NEUTROPENIA [None]
